FAERS Safety Report 5473916-5 (Version None)
Quarter: 2007Q3

REPORT INFORMATION
  Report Type: 
  Country: None (occurrence: None)
  Receive Date: 20070831
  Receipt Date: 20070402
  Transmission Date: 20080115
  Serious: No
  Sender: FDA-Public Use
  Company Number: 236989

PATIENT
  Age: 72 Year
  Sex: Female

DRUGS (19)
  1. LUCENTIS [Suspect]
     Indication: MACULAR DEGENERATION
     Dates: start: 20061229
  2. VAGIFEM [Concomitant]
  3. FLONASE [Concomitant]
  4. KLONOPIN [Concomitant]
  5. UNSPECIFIED MEDICATION(GENERIC COMPONENT(S) NOT KNOWN) [Concomitant]
  6. LEVOTHROID [Concomitant]
  7. ADVAIR DISKUS 100/50 [Concomitant]
  8. ASPIRIN [Concomitant]
  9. ATENOLOL [Concomitant]
  10. ATIVAN [Concomitant]
  11. CARDIZEM [Concomitant]
  12. DEMADEX [Concomitant]
  13. EFFEXOR XR [Concomitant]
  14. LIPITOR [Concomitant]
  15. GLUCOPHAGE [Concomitant]
  16. EYE VITAMIN(VITAMIN NOS) [Concomitant]
  17. REFRESH TEARS(CARBOXYMETHYLCELLULOSE SODIUM) [Concomitant]
  18. TRICOR [Concomitant]
  19. ESTRADIOL [Concomitant]

REACTIONS (1)
  - VISUAL DISTURBANCE [None]
